FAERS Safety Report 23729879 (Version 2)
Quarter: 2024Q2

REPORT INFORMATION
  Report Type: Spontaneous
  Country: CN (occurrence: CN)
  Receive Date: 20240411
  Receipt Date: 20240520
  Transmission Date: 20240716
  Serious: Yes (Other)
  Sender: FDA-Public Use
  Company Number: CN-NOVOPROD-1199514

PATIENT
  Age: 75 Year
  Sex: Male
  Weight: 75 kg

DRUGS (1)
  1. INSULIN ASPART [Suspect]
     Active Substance: INSULIN ASPART
     Indication: Type 2 diabetes mellitus
     Dosage: 38 IU, QD (20 U IN THE MORNING AND 18 U IN THE EVENING)
     Route: 058
     Dates: end: 202404

REACTIONS (1)
  - Glomerulonephritis chronic [Not Recovered/Not Resolved]

NARRATIVE: CASE EVENT DATE: 20230201
